FAERS Safety Report 12570495 (Version 1)
Quarter: 2016Q3

REPORT INFORMATION
  Report Type: Spontaneous
  Country: US (occurrence: IN)
  Receive Date: 20160719
  Receipt Date: 20160719
  Transmission Date: 20161109
  Serious: Yes (Other)
  Sender: FDA-Public Use
  Company Number: IN-JUBILANT HOLLISTERSTIER LLC-1055243

PATIENT
  Age: 49 Year
  Sex: Male

DRUGS (1)
  1. MIXTURE OF STANDARDIZED MITES [Suspect]
     Active Substance: DERMATOPHAGOIDES FARINAE\DERMATOPHAGOIDES PTERONYSSINUS
     Indication: ALLERGY TEST
     Route: 050

REACTIONS (3)
  - Dyspnoea [None]
  - Chest discomfort [None]
  - Wheezing [None]
